FAERS Safety Report 14078969 (Version 1)
Quarter: 2017Q4

REPORT INFORMATION
  Report Type: Spontaneous
  Country: US (occurrence: US)
  Receive Date: 20171012
  Receipt Date: 20171012
  Transmission Date: 20180321
  Serious: No
  Sender: FDA-Public Use
  Company Number: US-MYLANLABS-2017M1025761

PATIENT
  Sex: Male
  Weight: 81 kg

DRUGS (2)
  1. FENTANYL. [Suspect]
     Active Substance: FENTANYL
     Indication: NECK PAIN
     Dosage: 75 ?G, QH, CHANGE Q48H
     Route: 062
     Dates: start: 201611
  2. FENTANYL. [Suspect]
     Active Substance: FENTANYL
     Indication: BACK PAIN

REACTIONS (1)
  - Drug ineffective [Unknown]
